FAERS Safety Report 13450857 (Version 1)
Quarter: 2017Q2

REPORT INFORMATION
  Report Type: Spontaneous
  Country: GB (occurrence: GB)
  Receive Date: 20170418
  Receipt Date: 20170418
  Transmission Date: 20170830
  Serious: Yes (Death, Other)
  Sender: FDA-Public Use
  Company Number: GB-CONCORDIA PHARMACEUTICALS INC.-GSH201704-002273

PATIENT
  Age: 70 Year
  Sex: Male
  Weight: 103 kg

DRUGS (10)
  1. TINZAPARIN [Concomitant]
     Active Substance: TINZAPARIN
  2. BUMETANIDE. [Concomitant]
     Active Substance: BUMETANIDE
  3. AMLODIPINE [Concomitant]
     Active Substance: AMLODIPINE BESYLATE
  4. COTRIMOXAZOLE [Concomitant]
     Active Substance: SULFAMETHOXAZOLE\TRIMETHOPRIM
  5. ATORVASTATIN [Concomitant]
     Active Substance: ATORVASTATIN
  6. NYSTATIN. [Concomitant]
     Active Substance: NYSTATIN
  7. OMEPRAZOLE. [Concomitant]
     Active Substance: OMEPRAZOLE
  8. PREDNISOLONE. [Suspect]
     Active Substance: PREDNISOLONE
  9. CYCLOPHOSPHAMIDE. [Suspect]
     Active Substance: CYCLOPHOSPHAMIDE
     Indication: GLOMERULONEPHRITIS ACUTE
     Dosage: UNKNOWN
     Route: 048
     Dates: start: 20170216, end: 20170324
  10. AMILORIDE [Concomitant]
     Active Substance: AMILORIDE

REACTIONS (2)
  - Sepsis [Unknown]
  - Pancytopenia [Fatal]

NARRATIVE: CASE EVENT DATE: 20170324
